FAERS Safety Report 4788619-X (Version None)
Quarter: 2005Q4

REPORT INFORMATION
  Report Type: 
  Country: None (occurrence: None)
  Receive Date: 20051005
  Receipt Date: 20050930
  Transmission Date: 20060501
  Serious: Yes (Hospitalization)
  Sender: FDA-Public Use
  Company Number: JPKYO-S-20050026

PATIENT
  Age: 72 Year
  Sex: Male

DRUGS (12)
  1. NAVELBINE [Suspect]
     Dosage: 27MG PER DAY
     Route: 042
     Dates: start: 20050610, end: 20050708
  2. PRIMPERAN INJ [Concomitant]
     Route: 042
     Dates: start: 20050610, end: 20050708
  3. DECADRON [Concomitant]
     Route: 042
     Dates: start: 20050610, end: 20050708
  4. BIOFERMIN [Concomitant]
     Route: 048
     Dates: start: 20050701, end: 20050707
  5. AMARYL [Concomitant]
     Route: 048
     Dates: start: 20050608
  6. NICOTINELL [Concomitant]
     Dates: start: 20050613
  7. GASTER D [Concomitant]
     Route: 048
     Dates: start: 20050610
  8. GLYCEOL [Concomitant]
     Route: 042
     Dates: start: 20050613, end: 20050627
  9. PURSENNID [Concomitant]
     Route: 048
     Dates: start: 20050705
  10. DECADRON [Concomitant]
     Route: 042
     Dates: start: 20050705, end: 20050722
  11. AMOBAN [Concomitant]
     Route: 048
     Dates: start: 20050713
  12. DECADRON [Concomitant]
     Route: 048
     Dates: start: 20050617, end: 20050627

REACTIONS (5)
  - BODY TEMPERATURE INCREASED [None]
  - INTERSTITIAL LUNG DISEASE [None]
  - OXYGEN SATURATION DECREASED [None]
  - RALES [None]
  - RESPIRATORY RATE INCREASED [None]
